FAERS Safety Report 4922546-X (Version None)
Quarter: 2006Q1

REPORT INFORMATION
  Report Type: 
  Country: None (occurrence: None)
  Receive Date: 20060224
  Receipt Date: 20050922
  Transmission Date: 20060701
  Serious: Yes (Other)
  Sender: FDA-Public Use
  Company Number: US-GLAXOSMITHKLINE-A0575444A

PATIENT
  Age: 45 Year
  Sex: Female

DRUGS (9)
  1. ADVAIR DISKUS 100/50 [Suspect]
     Indication: ASTHMA
     Dosage: 1PUFF TWICE PER DAY
     Route: 055
     Dates: start: 20041206, end: 20050104
  2. MAXAIR [Concomitant]
  3. ALLEGRA [Concomitant]
  4. NASACORT [Concomitant]
  5. PREDNISONE [Concomitant]
  6. OMNICEF [Concomitant]
  7. ALBUTEROL [Concomitant]
  8. PULMICORT [Concomitant]
  9. SINGULAIR [Concomitant]

REACTIONS (11)
  - ASTHENIA [None]
  - FEELING COLD [None]
  - HAEMORRHAGE [None]
  - HEADACHE [None]
  - HYPOAESTHESIA [None]
  - HYPOTHALAMO-PITUITARY DISORDERS [None]
  - ILL-DEFINED DISORDER [None]
  - INSOMNIA [None]
  - MIGRAINE [None]
  - MUSCLE SPASMS [None]
  - NERVE INJURY [None]
